FAERS Safety Report 5720421-4 (Version None)
Quarter: 2008Q2

REPORT INFORMATION
  Report Type: 
  Country: None (occurrence: None)
  Receive Date: 20080428
  Receipt Date: 20080331
  Transmission Date: 20081010
  Serious: No
  Sender: FDA-Public Use
  Company Number: US-BOEHRINGER INGELHEIM GMBH, GERMANY-2008-BP-05165BP

PATIENT
  Sex: Male

DRUGS (6)
  1. FLOMAX [Suspect]
     Indication: PROSTATIC DISORDER
  2. FLOMAX [Suspect]
     Indication: PROSTATOMEGALY
  3. LIPITOR [Concomitant]
     Dates: start: 20010901
  4. OXYTROL [Concomitant]
  5. VESICARE [Concomitant]
  6. SANCTURA XR [Concomitant]

REACTIONS (1)
  - LIVER FUNCTION TEST ABNORMAL [None]
